FAERS Safety Report 7481855-3 (Version None)
Quarter: 2011Q2

REPORT INFORMATION
  Report Type: 
  Country: None (occurrence: None)
  Receive Date: 20110516
  Receipt Date: 20110504
  Transmission Date: 20111010
  Serious: Yes (Other)
  Sender: FDA-Public Use
  Company Number: FR-JNJFOC-20110408272

PATIENT
  Sex: Male
  Weight: 80 kg

DRUGS (3)
  1. REMICADE [Suspect]
     Indication: PSORIASIS
     Dates: start: 20070301, end: 20100501
  2. STELARA [Suspect]
     Indication: PSORIASIS
     Route: 058
     Dates: start: 20100510, end: 20100910
  3. METHOTREXATE [Suspect]
     Indication: PSORIASIS
     Dates: start: 20070101, end: 20090101

REACTIONS (1)
  - PROSTATE CANCER [None]
